FAERS Safety Report 12258037 (Version 1)
Quarter: 2016Q2

REPORT INFORMATION
  Report Type: Other
  Country: US (occurrence: US)
  Receive Date: 20160412
  Receipt Date: 20160412
  Transmission Date: 20160815
  Serious: Yes (Hospitalization)
  Sender: FDA-Public Use
  Company Number: US-B. BRAUN MEDICAL INC.-1050484

PATIENT
  Age: 14 Month
  Sex: Female
  Weight: 10 kg

DRUGS (3)
  1. ESMOLOL [Suspect]
     Active Substance: ESMOLOL HYDROCHLORIDE
  2. AMIODARONE [Suspect]
     Active Substance: AMIODARONE
  3. LIDOCAINE HYDROCHLORIDE AND DEXTROSE [Suspect]
     Active Substance: LIDOCAINE HYDROCHLORIDE\LIDOCAINE HYDROCHLORIDE ANHYDROUS
     Indication: VENTRICULAR TACHYCARDIA
     Route: 042

REACTIONS (2)
  - Drug ineffective [None]
  - Ventricular tachycardia [None]
